FAERS Safety Report 13595176 (Version 1)
Quarter: 2017Q2

REPORT INFORMATION
  Report Type: Spontaneous
  Country: US (occurrence: US)
  Receive Date: 20170531
  Receipt Date: 20170531
  Transmission Date: 20170830
  Serious: Yes (Hospitalization, Other)
  Sender: FDA-Public Use
  Company Number: US-TORRENT-00002769

PATIENT
  Age: 65 Year
  Sex: Female

DRUGS (3)
  1. ZOFRAN [Interacting]
     Active Substance: ONDANSETRON HYDROCHLORIDE
  2. TRAZODONE [Interacting]
     Active Substance: TRAZODONE HYDROCHLORIDE
  3. VENLAFAXINE HYDROCHLORIDE. [Suspect]
     Active Substance: VENLAFAXINE HYDROCHLORIDE

REACTIONS (6)
  - Electrocardiogram QT prolonged [Unknown]
  - Serotonin syndrome [Unknown]
  - Atrial fibrillation [Unknown]
  - Renal impairment [Unknown]
  - Drug interaction [Unknown]
  - Liver disorder [Unknown]
